FAERS Safety Report 26003889 (Version 2)
Quarter: 2025Q4

REPORT INFORMATION
  Report Type: Spontaneous
  Country: US (occurrence: US)
  Receive Date: 20251106
  Receipt Date: 20251116
  Transmission Date: 20260117
  Serious: No
  Sender: SANOFI AVENTIS
  Company Number: US-SA-2025SA321712

PATIENT
  Age: 31 Year
  Sex: Female

DRUGS (2)
  1. DUPIXENT [Suspect]
     Active Substance: DUPILUMAB
     Indication: Nasal polyps
     Dosage: 300 MG, QOW
     Route: 058
     Dates: start: 20250904
  2. NUCALA [Concomitant]
     Active Substance: MEPOLIZUMAB

REACTIONS (5)
  - Cough [Recovered/Resolved]
  - Rhinorrhoea [Recovered/Resolved]
  - Viral infection [Unknown]
  - Injection site pain [Recovered/Resolved]
  - Product preparation error [Unknown]

NARRATIVE: CASE EVENT DATE: 20250101
